FAERS Safety Report 6272046-2 (Version None)
Quarter: 2009Q3

REPORT INFORMATION
  Report Type: 
  Country: None (occurrence: None)
  Receive Date: 20090717
  Receipt Date: 20090706
  Transmission Date: 20100115
  Serious: Yes (Other)
  Sender: FDA-Public Use
  Company Number: A0797150A

PATIENT
  Age: 47 Year
  Sex: Male

DRUGS (3)
  1. MELPHALAN [Suspect]
     Indication: DRUG USE FOR UNKNOWN INDICATION
     Dates: start: 20081201
  2. CYCLOPHOSPHAMIDE [Concomitant]
  3. STEM CELL TRANSPLANT [Concomitant]

REACTIONS (6)
  - DIARRHOEA HAEMORRHAGIC [None]
  - GASTROINTESTINAL INFLAMMATION [None]
  - HYPOTENSION [None]
  - IMPAIRED HEALING [None]
  - LOBAR PNEUMONIA [None]
  - NEUTROPENIC SEPSIS [None]
